FAERS Safety Report 6225013-9 (Version None)
Quarter: 2009Q2

REPORT INFORMATION
  Report Type: 
  Country: None (occurrence: None)
  Receive Date: 20090612
  Receipt Date: 20090406
  Transmission Date: 20091009
  Serious: No
  Sender: FDA-Public Use
  Company Number: US-ABBOTT-09P-163-0566622-00

PATIENT
  Sex: Female
  Weight: 113.5 kg

DRUGS (2)
  1. HUMIRA [Suspect]
     Indication: RHEUMATOID ARTHRITIS
     Dates: start: 20070101, end: 20090301
  2. HUMIRA [Suspect]
     Dates: start: 20090301

REACTIONS (1)
  - RESPIRATORY TRACT INFECTION [None]
